FAERS Safety Report 7299609-X (Version None)
Quarter: 2011Q1

REPORT INFORMATION
  Report Type: 
  Country: None (occurrence: None)
  Receive Date: 20110217
  Receipt Date: 20110208
  Transmission Date: 20110831
  Serious: Yes (Other)
  Sender: FDA-Public Use
  Company Number: US-CEPHALON-2011000261

PATIENT
  Sex: Male

DRUGS (6)
  1. BUSPAR [Concomitant]
  2. PROVIGIL [Suspect]
     Indication: NARCOLEPSY
     Route: 048
     Dates: start: 20100727, end: 20110118
  3. CITALOPRAM [Suspect]
     Dates: start: 20091101
  4. LITHIUM [Suspect]
     Indication: BIPOLAR DISORDER
     Route: 048
     Dates: start: 20100401
  5. HYDROCHLOROTHIAZIDE [Concomitant]
  6. POTASSIUM [Concomitant]

REACTIONS (6)
  - PERSONALITY CHANGE [None]
  - INTENTIONAL DRUG MISUSE [None]
  - THERAPEUTIC RESPONSE UNEXPECTED [None]
  - BIPOLAR DISORDER [None]
  - FEELING ABNORMAL [None]
  - DRUG INTERACTION [None]
